FAERS Safety Report 8668186 (Version 3)
Quarter: 2012Q4

REPORT INFORMATION
  Report Type: 
  Country: GB (occurrence: GB)
  Receive Date: 20120717
  Receipt Date: 20120926
  Transmission Date: 20130627
  Serious: Yes (Other)
  Sender: FDA-Public Use
  Company Number: GB-ROCHE-1088794

PATIENT
  Sex: Male

DRUGS (2)
  1. LUCENTIS [Suspect]
     Indication: AGE-RELATED MACULAR DEGENERATION
     Route: 050
  2. AZARGA [Concomitant]
     Route: 065
     Dates: start: 20100602

REACTIONS (6)
  - Mastitis [Recovered/Resolved]
  - Endophthalmitis [Recovered/Resolved]
  - Erythema [Unknown]
  - Retinal oedema [Unknown]
  - Borderline glaucoma [Unknown]
  - Retinal haemorrhage [Unknown]
